FAERS Safety Report 16011181 (Version 1)
Quarter: 2019Q1

REPORT INFORMATION
  Report Type: Spontaneous
  Country: US (occurrence: US)
  Receive Date: 20190227
  Receipt Date: 20190227
  Transmission Date: 20190418
  Serious: No
  Sender: FDA-Public Use
  Company Number: US-TEVA-2019-US-1006576

PATIENT
  Age: 60 Year
  Sex: Female

DRUGS (1)
  1. CLONAZEPAM ORALLY DISINTEGRATING TABLETS [Suspect]
     Active Substance: CLONAZEPAM
     Indication: TORTICOLLIS
     Route: 048
     Dates: start: 1989

REACTIONS (1)
  - Product use in unapproved indication [Unknown]
